APPROVED DRUG PRODUCT: OFLOXACIN
Active Ingredient: OFLOXACIN
Strength: 300MG
Dosage Form/Route: TABLET;ORAL
Application: A091656 | Product #002 | TE Code: AB
Applicant: CADILA PHARMACEUTICALS LTD
Approved: Sep 18, 2014 | RLD: No | RS: No | Type: RX